FAERS Safety Report 5388866-2 (Version None)
Quarter: 2007Q3

REPORT INFORMATION
  Report Type: 
  Country: None (occurrence: None)
  Receive Date: 20070713
  Receipt Date: 20070626
  Transmission Date: 20080115
  Serious: Yes (Death)
  Sender: FDA-Public Use
  Company Number: 033/E2B_00010780

PATIENT
  Sex: Male

DRUGS (1)
  1. METFORMIN, TABLETS [Suspect]
     Dosage: PO
     Route: 048

REACTIONS (1)
  - DEATH [None]
